FAERS Safety Report 6857477-1 (Version None)
Quarter: 2010Q3

REPORT INFORMATION
  Report Type: 
  Country: None (occurrence: None)
  Receive Date: 20100719
  Receipt Date: 20080121
  Transmission Date: 20110219
  Serious: No
  Sender: FDA-Public Use
  Company Number: US-PFIZER INC-2008008891

PATIENT
  Sex: Female
  Weight: 45.4 kg

DRUGS (2)
  1. CHANTIX [Suspect]
     Indication: SMOKING CESSATION THERAPY
     Dates: start: 20080101
  2. SULAR [Concomitant]
     Indication: HYPERTENSION

REACTIONS (2)
  - CONSTIPATION [None]
  - INSOMNIA [None]
